FAERS Safety Report 9892857 (Version 1)
Quarter: 2014Q1

REPORT INFORMATION
  Report Type: Spontaneous
  Country: US (occurrence: US)
  Receive Date: 20140213
  Receipt Date: 20140213
  Transmission Date: 20141002
  Serious: Yes (Other)
  Sender: FDA-Public Use
  Company Number: US-AMGEN-USASP2014009784

PATIENT
  Age: 50 Year
  Sex: Female
  Weight: 52.15 kg

DRUGS (10)
  1. ENBREL [Suspect]
     Indication: PRODUCT USED FOR UNKNOWN INDICATION
     Dosage: 50 MG, QWK
     Route: 058
  2. MAALOX                             /00082501/ [Concomitant]
     Dosage: 600 MG, UNK
  3. ATENOLOL [Concomitant]
     Dosage: 25 MG, UNK
  4. PRAVASTATIN [Concomitant]
     Dosage: 40 MG, UNK
  5. LEVOTHYROXIN [Concomitant]
     Dosage: 100 MU, UNK
  6. ZANTAC [Concomitant]
     Dosage: 75 MG, UNK
  7. VITAMIN D                          /00107901/ [Concomitant]
     Dosage: 1000 UNIT, UNK
  8. CALCIUM [Concomitant]
     Dosage: 500 UNK, UNK
  9. FOLIC ACID [Concomitant]
     Dosage: UNK
  10. METHOTREXATE [Concomitant]
     Dosage: 50 MG/2ML, UNK

REACTIONS (2)
  - Tooth abscess [Unknown]
  - Fatigue [Unknown]
